FAERS Safety Report 7996937-7 (Version None)
Quarter: 2011Q4

REPORT INFORMATION
  Report Type: 
  Country: None (occurrence: None)
  Receive Date: 20111221
  Receipt Date: 20111209
  Transmission Date: 20120403
  Serious: Yes (Hospitalization, Other)
  Sender: FDA-Public Use
  Company Number: US-CUBIST-2011S1000814

PATIENT
  Age: 91 Year
  Sex: Female
  Weight: 43.8 kg

DRUGS (6)
  1. CUBICIN [Suspect]
     Indication: STAPHYLOCOCCAL BACTERAEMIA
     Route: 042
     Dates: start: 20111001, end: 20111112
  2. CUBICIN [Suspect]
     Indication: INTERVERTEBRAL DISCITIS
     Route: 042
     Dates: start: 20111001, end: 20111112
  3. CUBICIN [Suspect]
     Route: 042
     Dates: start: 20111001, end: 20111112
  4. CUBICIN [Suspect]
     Route: 042
     Dates: start: 20111001, end: 20111112
  5. CUBICIN [Suspect]
     Route: 042
     Dates: start: 20111001, end: 20111112
  6. CUBICIN [Suspect]
     Indication: OSTEOMYELITIS
     Route: 042
     Dates: start: 20111001, end: 20111112

REACTIONS (6)
  - EOSINOPHILIA [None]
  - CONFUSIONAL STATE [None]
  - HYPERCALCAEMIA [None]
  - RENAL FAILURE ACUTE [None]
  - DEHYDRATION [None]
  - COUGH [None]
